FAERS Safety Report 9367355 (Version 2)
Quarter: 2013Q3

REPORT INFORMATION
  Report Type: Spontaneous
  Country: US (occurrence: US)
  Receive Date: 20130625
  Receipt Date: 20130902
  Transmission Date: 20140515
  Serious: Yes (Other)
  Sender: FDA-Public Use
  Company Number: US-PAR PHARMACEUTICAL, INC-2013SCPR005992

PATIENT
  Sex: 0

DRUGS (1)
  1. METOCLOPRAMIDE [Suspect]
     Indication: PRODUCT USED FOR UNKNOWN INDICATION
     Dosage: 10 MG, QID
     Route: 048

REACTIONS (7)
  - Cerebellar ataxia [Unknown]
  - Cerebral small vessel ischaemic disease [Unknown]
  - Myofascial pain syndrome [Unknown]
  - Hiatus hernia [Unknown]
  - Oesophagitis [Unknown]
  - Restless legs syndrome [Unknown]
  - Osteopenia [Unknown]
